FAERS Safety Report 17519818 (Version 1)
Quarter: 2020Q1

REPORT INFORMATION
  Report Type: Spontaneous
  Country: US (occurrence: US)
  Receive Date: 20200228
  Receipt Date: 20200228
  Transmission Date: 20200409
  Serious: Yes (Disabling)
  Sender: FDA-Public Use
  Company Number: None

PATIENT
  Age: 55 Year
  Sex: Male
  Weight: 65.77 kg

DRUGS (1)
  1. TRUVADA [Suspect]
     Active Substance: EMTRICITABINE\TENOFOVIR DISOPROXIL FUMARATE
     Indication: HIV INFECTION
     Dosage: ?          OTHER STRENGTH:200MG/300MG;QUANTITY:1 PILL;?
     Route: 048
     Dates: start: 20021101, end: 20200211

REACTIONS (26)
  - Nausea [None]
  - Confusional state [None]
  - New daily persistent headache [None]
  - Loss of consciousness [None]
  - Vision blurred [None]
  - Fatigue [None]
  - Dizziness [None]
  - Back pain [None]
  - Vomiting [None]
  - Bone loss [None]
  - Gingival erosion [None]
  - Fall [None]
  - Body height decreased [None]
  - Abdominal pain [None]
  - Abnormal dreams [None]
  - Blood cholesterol increased [None]
  - Musculoskeletal stiffness [None]
  - Grip strength decreased [None]
  - Joint noise [None]
  - Respiratory rate increased [None]
  - Myalgia [None]
  - Musculoskeletal pain [None]
  - Arthralgia [None]
  - Onychoclasis [None]
  - Dental caries [None]
  - Insomnia [None]

NARRATIVE: CASE EVENT DATE: 20071101
